FAERS Safety Report 23593929 (Version 3)
Quarter: 2025Q1

REPORT INFORMATION
  Report Type: Spontaneous
  Country: US (occurrence: US)
  Receive Date: 20240305
  Receipt Date: 20250206
  Transmission Date: 20250409
  Serious: Yes (Other)
  Sender: NOVO NORDISK
  Company Number: US-NOVOPROD-1182883

PATIENT
  Age: 54 Year
  Sex: Male

DRUGS (3)
  1. OZEMPIC [Suspect]
     Active Substance: SEMAGLUTIDE
     Indication: Type 2 diabetes mellitus
     Route: 058
     Dates: start: 20220401
  2. OZEMPIC [Suspect]
     Active Substance: SEMAGLUTIDE
     Indication: Type 2 diabetes mellitus
     Route: 058
     Dates: start: 20230524
  3. OZEMPIC [Suspect]
     Active Substance: SEMAGLUTIDE
     Indication: Type 2 diabetes mellitus
     Route: 058

REACTIONS (14)
  - Parathyroid cyst [Unknown]
  - Compression fracture [Unknown]
  - Gastrointestinal inflammation [Unknown]
  - Aortic arteriosclerosis [Unknown]
  - Chest pain [Unknown]
  - Vertebral foraminal stenosis [Unknown]
  - Vertebral foraminal stenosis [Unknown]
  - Intervertebral disc space narrowing [Unknown]
  - Spinal osteoarthritis [Unknown]
  - Sinusitis [Unknown]
  - Vertebral foraminal stenosis [Unknown]
  - Intervertebral disc space narrowing [Unknown]
  - Tachycardia [Unknown]
  - Product use issue [Unknown]

NARRATIVE: CASE EVENT DATE: 20230109
